FAERS Safety Report 20763862 (Version 1)
Quarter: 2022Q2

REPORT INFORMATION
  Report Type: Report from Study
  Country: CA (occurrence: CA)
  Receive Date: 20220428
  Receipt Date: 20220428
  Transmission Date: 20220721
  Serious: Yes (Other)
  Sender: FDA-Public Use
  Company Number: CA-OTSUKA-2022_024946

PATIENT
  Sex: Female

DRUGS (1)
  1. CEDAZURIDINE\DECITABINE [Suspect]
     Active Substance: CEDAZURIDINE\DECITABINE
     Indication: Myelodysplastic syndrome
     Dosage: 5 PILLS/CYCLE EVERY 28 DAYS
     Route: 065
     Dates: start: 20211129

REACTIONS (2)
  - Blood product transfusion dependent [Unknown]
  - General physical health deterioration [Unknown]
